FAERS Safety Report 5001618-8 (Version None)
Quarter: 2006Q2

REPORT INFORMATION
  Report Type: 
  Country: None (occurrence: None)
  Receive Date: 20060515
  Receipt Date: 20060501
  Transmission Date: 20061013
  Serious: Yes (Other)
  Sender: FDA-Public Use
  Company Number: PHHO2006AU07640

PATIENT
  Age: 63 Year
  Sex: Male

DRUGS (3)
  1. ZOLEDRONATE [Suspect]
     Indication: MULTIPLE MYELOMA
     Dosage: 4 MG, QMO
     Route: 042
     Dates: start: 20021028
  2. THALIDOMIDE [Concomitant]
     Dates: start: 20021028
  3. PREDNISOLONE [Concomitant]

REACTIONS (2)
  - OSTEONECROSIS [None]
  - TOOTH LOSS [None]
